FAERS Safety Report 4658812-5 (Version None)
Quarter: 2005Q2

REPORT INFORMATION
  Report Type: 
  Country: None (occurrence: None)
  Receive Date: 20050511
  Receipt Date: 20050426
  Transmission Date: 20051028
  Serious: Yes (Hospitalization)
  Sender: FDA-Public Use
  Company Number: A0555801A

PATIENT
  Age: 57 Year
  Sex: Female

DRUGS (2)
  1. NICODERM CQ [Suspect]
     Indication: SMOKING CESSATION THERAPY
     Route: 062
     Dates: start: 20040901, end: 20041101
  2. NICORETTE (MINT) [Suspect]
     Indication: SMOKING CESSATION THERAPY
     Route: 002
     Dates: start: 20050401, end: 20050401

REACTIONS (4)
  - DRUG INEFFECTIVE [None]
  - METRORRHAGIA [None]
  - NICOTINE DEPENDENCE [None]
  - UTERINE CANCER [None]
